FAERS Safety Report 7482972-4 (Version None)
Quarter: 2011Q2

REPORT INFORMATION
  Report Type: 
  Country: None (occurrence: None)
  Receive Date: 20110516
  Receipt Date: 20110415
  Transmission Date: 20111010
  Serious: No
  Sender: FDA-Public Use
  Company Number: US-BAYER-2011-033761

PATIENT
  Age: 76 Year
  Sex: Male
  Weight: 100 kg

DRUGS (9)
  1. LOVASTATIN [Concomitant]
  2. NEXIUM [Concomitant]
  3. ISOSORBIDE MONONITRATE [Concomitant]
     Indication: ISCHAEMIC HEART DISEASE PROPHYLAXIS
  4. ETANALDIN [Concomitant]
  5. MULTI-VITAMIN [Concomitant]
     Indication: VITAMIN SUPPLEMENTATION
  6. ALEVE (CAPLET) [Suspect]
     Indication: BACK PAIN
     Dosage: 2 DF, TID
     Route: 048
     Dates: start: 20110326, end: 20110408
  7. ENALAPRIL [Concomitant]
  8. PLAVIX [Concomitant]
  9. VITAMIN C [Concomitant]
     Indication: VITAMIN SUPPLEMENTATION

REACTIONS (1)
  - NAUSEA [None]
